FAERS Safety Report 4719455-8 (Version None)
Quarter: 2005Q3

REPORT INFORMATION
  Report Type: 
  Country: None (occurrence: None)
  Receive Date: 20050719
  Receipt Date: 20050711
  Transmission Date: 20060218
  Serious: Yes (Hospitalization)
  Sender: FDA-Public Use
  Company Number: 163-20785-05060004

PATIENT
  Age: 70 Year
  Sex: Male

DRUGS (8)
  1. THALOMID [Suspect]
     Indication: MULTIPLE MYELOMA
     Dosage: 200 MG DAILY ORAL
     Route: 048
     Dates: start: 20030826
  2. CARBAMAZEPINE [Concomitant]
  3. HEPARIN [Concomitant]
  4. SYNTHROID [Concomitant]
  5. PROTONIX [Concomitant]
  6. DILANTIN [Concomitant]
  7. PHENERGAN [Concomitant]
  8. CEFAZOLIN [Concomitant]

REACTIONS (4)
  - BRADYCARDIA [None]
  - HYPOTHERMIA [None]
  - NEUTROPENIA [None]
  - PANCREATITIS ACUTE [None]
